FAERS Safety Report 23267362 (Version 1)
Quarter: 2023Q4

REPORT INFORMATION
  Report Type: Report from Study
  Country: US (occurrence: US)
  Receive Date: 20231206
  Receipt Date: 20231206
  Transmission Date: 20240109
  Serious: Yes (Other)
  Sender: FDA-Public Use
  Company Number: US-SERVIER-S23000715

PATIENT

DRUGS (6)
  1. PEGASPARGASE [Suspect]
     Active Substance: PEGASPARGASE
     Indication: B precursor type acute leukaemia
     Dosage: 2000 [IU], OTHER
     Route: 042
     Dates: start: 20210716, end: 20220512
  2. DEXAMETHASONE [Suspect]
     Active Substance: DEXAMETHASONE
     Indication: B precursor type acute leukaemia
     Dosage: 6 MG/M2, 1-5, 29-33, 57-61 OF  EACH 3 MONTH-CYCLE
     Route: 048
     Dates: start: 20221128
  3. MERCAPTOPURINE [Suspect]
     Active Substance: MERCAPTOPURINE
     Indication: B precursor type acute leukaemia
     Dosage: 75 MG/M2, DAYS  1-84 OF EACH CYCLE
     Route: 048
     Dates: start: 20221128
  4. METHOTREXATE [Suspect]
     Active Substance: METHOTREXATE
     Indication: B precursor type acute leukaemia
     Dosage: 15 MG, ON DAYS 1, 29 FOR THE FIRST 4 CYCLES, THEN ON DAY 1 OF EACH CYCLE
     Route: 037
     Dates: start: 20221128
  5. METHOTREXATE [Suspect]
     Active Substance: METHOTREXATE
     Dosage: 20 MG/M2, 1X/WEEK
     Route: 048
     Dates: start: 20221128
  6. VINCRISTINE [Suspect]
     Active Substance: VINCRISTINE
     Indication: B precursor type acute leukaemia
     Dosage: 1.5 MG/M2 MAX 2 MG ON DAYS 1,29,57 OF EACH CYCLE
     Route: 042
     Dates: start: 20221128

REACTIONS (2)
  - Abortion spontaneous [Recovered/Resolved]
  - Maternal exposure via partner during pregnancy [Recovered/Resolved]

NARRATIVE: CASE EVENT DATE: 20221215
